FAERS Safety Report 5692292-6 (Version None)
Quarter: 2008Q2

REPORT INFORMATION
  Report Type: 
  Country: None (occurrence: None)
  Receive Date: 20080402
  Receipt Date: 20080327
  Transmission Date: 20081010
  Serious: Yes (Life-Threatening, Hospitalization)
  Sender: FDA-Public Use
  Company Number: RO-JNJFOC-20071103675

PATIENT
  Sex: Female
  Weight: 58 kg

DRUGS (1)
  1. RISPOLEPT CONSTA [Suspect]
     Indication: SCHIZOPHRENIA
     Route: 030

REACTIONS (5)
  - HEPATITIS VIRAL [None]
  - HYPERSPLENISM [None]
  - LUNG NEOPLASM MALIGNANT [None]
  - THROMBOCYTOPENIA [None]
  - WEIGHT DECREASED [None]
